FAERS Safety Report 22072495 (Version 1)
Quarter: 2023Q1

REPORT INFORMATION
  Report Type: Spontaneous
  Country: CA (occurrence: CA)
  Receive Date: 20230308
  Receipt Date: 20230308
  Transmission Date: 20230418
  Serious: Yes (Hospitalization, Other)
  Sender: FDA-Public Use
  Company Number: CA-CELLTRION INC.-2023CA001726

PATIENT

DRUGS (5)
  1. INFLECTRA [Suspect]
     Active Substance: INFLIXIMAB-DYYB
     Indication: Colitis ulcerative
     Dosage: 600 MG, W0, W2, W6 AND Q8 WEEKS
     Route: 042
     Dates: start: 20230116
  2. INFLECTRA [Suspect]
     Active Substance: INFLIXIMAB-DYYB
     Dosage: 600 MG, W0, W2, W6 AND Q8 WEEKS
     Route: 042
     Dates: start: 20230130
  3. INFLECTRA [Suspect]
     Active Substance: INFLIXIMAB-DYYB
     Dosage: 600 MG, W0, W2, W6 AND Q8 WEEKS
     Route: 042
     Dates: start: 20230227
  4. MESALAMINE [Concomitant]
     Active Substance: MESALAMINE
     Dosage: 1 DF (LAST ADMINISTRATION: FEB-2023)
     Route: 048
  5. PENTASA [Concomitant]
     Active Substance: MESALAMINE
     Dosage: 1 DF
     Route: 048

REACTIONS (3)
  - Colitis ulcerative [Recovering/Resolving]
  - Urticaria [Recovering/Resolving]
  - Off label use [Unknown]

NARRATIVE: CASE EVENT DATE: 20230116
